FAERS Safety Report 5717506-5 (Version None)
Quarter: 2008Q2

REPORT INFORMATION
  Report Type: 
  Country: None (occurrence: None)
  Receive Date: 20080425
  Receipt Date: 20080423
  Transmission Date: 20081010
  Serious: Yes (Other)
  Sender: FDA-Public Use
  Company Number: SE-JNJFOC-20080405636

PATIENT
  Age: 74 Year
  Sex: Female

DRUGS (1)
  1. HALDOL DEPOT [Suspect]
     Indication: DRUG USE FOR UNKNOWN INDICATION
     Route: 048

REACTIONS (2)
  - BLOOD PRESSURE INCREASED [None]
  - INCORRECT ROUTE OF DRUG ADMINISTRATION [None]
